FAERS Safety Report 9446014 (Version 1)
Quarter: 2013Q3

REPORT INFORMATION
  Report Type: Spontaneous
  Country: IT (occurrence: IT)
  Receive Date: 20130807
  Receipt Date: 20130807
  Transmission Date: 20140515
  Serious: Yes (Hospitalization)
  Sender: FDA-Public Use
  Company Number: IT-MYLANLABS-2013S1016847

PATIENT
  Age: 81 Year
  Sex: Male
  Weight: 65 kg

DRUGS (3)
  1. OLANZAPINE [Suspect]
     Indication: BIPOLAR I DISORDER
     Route: 048
  2. TEGRETOL [Interacting]
     Indication: BIPOLAR I DISORDER
  3. METFORMIN [Concomitant]
     Indication: TYPE 2 DIABETES MELLITUS
     Dosage: TABLET

REACTIONS (6)
  - Drug interaction [Recovered/Resolved]
  - Overdose [Recovered/Resolved]
  - Asthenia [Recovered/Resolved]
  - Bradykinesia [Recovered/Resolved]
  - Stupor [Recovered/Resolved]
  - Speech disorder [Recovered/Resolved]
